FAERS Safety Report 5971631-2 (Version None)
Quarter: 2008Q4

REPORT INFORMATION
  Report Type: 
  Country: None (occurrence: None)
  Receive Date: 20081201
  Receipt Date: 20081125
  Transmission Date: 20090506
  Serious: Yes (Other)
  Sender: FDA-Public Use
  Company Number: NO-JNJFOC-20081105655

PATIENT
  Age: 42 Year

DRUGS (2)
  1. CONCERTA [Suspect]
     Indication: ATTENTION DEFICIT/HYPERACTIVITY DISORDER
     Route: 048
  2. SEROQUEL [Concomitant]
     Route: 065

REACTIONS (3)
  - FAECAL INCONTINENCE [None]
  - RENAL PAIN [None]
  - URINARY INCONTINENCE [None]
